FAERS Safety Report 13081978 (Version 2)
Quarter: 2017Q1

REPORT INFORMATION
  Report Type: Spontaneous
  Country: JP (occurrence: JP)
  Receive Date: 20170103
  Receipt Date: 20170131
  Transmission Date: 20170428
  Serious: Yes (Life-Threatening)
  Sender: FDA-Public Use
  Company Number: JP-PFIZER INC-2016604500

PATIENT
  Age: 56 Year
  Sex: Male

DRUGS (2)
  1. ATENOLOL. [Suspect]
     Active Substance: ATENOLOL
     Indication: CORONARY ARTERY STENOSIS
     Dosage: 25 MG, 1X/DAY
     Route: 048
  2. ASPIRIN. [Concomitant]
     Active Substance: ASPIRIN
     Indication: CORONARY ARTERY STENOSIS
     Dosage: UNK

REACTIONS (4)
  - Arteriospasm coronary [Recovered/Resolved]
  - Condition aggravated [Unknown]
  - Ventricular fibrillation [Recovered/Resolved]
  - Cardio-respiratory arrest [Unknown]
